FAERS Safety Report 9174505 (Version 1)
Quarter: 2013Q1

REPORT INFORMATION
  Report Type: Spontaneous
  Country: US (occurrence: US)
  Receive Date: 20130320
  Receipt Date: 20130320
  Transmission Date: 20140127
  Serious: No
  Sender: FDA-Public Use
  Company Number: US-MYLANLABS-2012S1016514

PATIENT
  Age: 52 Year
  Sex: Female
  Weight: 81.65 kg

DRUGS (11)
  1. ESTRADIOL TRANSDERMAL SYSTEM, USP [Suspect]
     Indication: HOT FLUSH
     Dosage: CHANGED QW
     Route: 062
     Dates: start: 20120606, end: 20120711
  2. ESTRADIOL TRANSDERMAL SYSTEM, USP [Suspect]
     Indication: NIGHT SWEATS
     Dosage: CHANGED QW
     Route: 062
     Dates: start: 20120606, end: 20120711
  3. ESTRADIOL TRANSDERMAL SYSTEM, USP [Suspect]
     Indication: HORMONE REPLACEMENT THERAPY
     Dosage: CHANGED QW
     Route: 062
     Dates: start: 20120606, end: 20120711
  4. ESTRADIOL TRANSDERMAL SYSTEM, USP [Suspect]
     Indication: HOT FLUSH
     Route: 062
     Dates: start: 2012
  5. ESTRADIOL TRANSDERMAL SYSTEM, USP [Suspect]
     Indication: NIGHT SWEATS
     Route: 062
     Dates: start: 2012
  6. ESTRADIOL TRANSDERMAL SYSTEM, USP [Suspect]
     Indication: HORMONE REPLACEMENT THERAPY
     Route: 062
     Dates: start: 2012
  7. ESTRADIOL TRANSDERMAL SYSTEM, USP [Suspect]
     Indication: HOT FLUSH
     Dosage: CHANGED QW
     Route: 062
     Dates: start: 20120711, end: 2012
  8. ESTRADIOL TRANSDERMAL SYSTEM, USP [Suspect]
     Indication: NIGHT SWEATS
     Dosage: CHANGED QW
     Route: 062
     Dates: start: 20120711, end: 2012
  9. PROGESTERONE [Concomitant]
     Indication: MENOPAUSE
     Route: 067
     Dates: start: 201207
  10. L THYROXINE [Concomitant]
     Indication: HYPOTHYROIDISM
     Dates: start: 201207
  11. LEVOCETIRIZINE [Concomitant]

REACTIONS (4)
  - Drug effect decreased [Recovered/Resolved]
  - Hot flush [Recovered/Resolved]
  - Application site pain [Recovered/Resolved]
  - Application site pruritus [Not Recovered/Not Resolved]
